FAERS Safety Report 4665918-3 (Version None)
Quarter: 2005Q2

REPORT INFORMATION
  Report Type: 
  Country: None (occurrence: None)
  Receive Date: 20050516
  Receipt Date: 20050516
  Transmission Date: 20051028
  Serious: Yes (Hospitalization)
  Sender: FDA-Public Use
  Company Number: None

PATIENT
  Age: 47 Year
  Sex: Male
  Weight: 75.5 kg

DRUGS (12)
  1. FLUDARABINE ATG 2250 MGX 2 022105-02205 [Suspect]
     Indication: CHEMOTHERAPY
     Dosage: 65 MG QD IV
     Route: 042
     Dates: start: 20050216, end: 20050220
  2. CYTOXAN [Suspect]
     Indication: CHRONIC LYMPHOCYTIC LEUKAEMIA
     Dosage: 1.87G QD IV
     Route: 042
     Dates: start: 20050221, end: 20050222
  3. CYTOXAN [Suspect]
     Indication: TRANSPLANT
     Dosage: 1.87G QD IV
     Route: 042
     Dates: start: 20050221, end: 20050222
  4. VANBCOMYCIN [Concomitant]
  5. PENTAMADINE [Concomitant]
  6. AZTREONAM [Concomitant]
  7. VORICONAZOLE [Concomitant]
  8. ACYCLOVIR [Concomitant]
  9. CARAFATE [Concomitant]
  10. MAGNESIUM OXIDE [Concomitant]
  11. G-CSF [Concomitant]
  12. PREDNISONE TAB [Concomitant]

REACTIONS (5)
  - CHILLS [None]
  - HYPOXIA [None]
  - LYMPHOPROLIFERATIVE DISORDER [None]
  - PYREXIA [None]
  - TRANSPLANT FAILURE [None]
